FAERS Safety Report 9300130 (Version 1)
Quarter: 2013Q1

REPORT INFORMATION
  Report Type: Spontaneous
  Country: US (occurrence: None)
  Receive Date: 20121220
  Receipt Date: 20121220
  Transmission Date: 20140127
  Serious: Yes (Hospitalization)
  Sender: FDA-Public Use
  Company Number: 1208USA005747

PATIENT
  Sex: Male

DRUGS (1)
  1. ZETIA (EZETIMIBE) [Suspect]
     Indication: BLOOD CHOLESTEROL
     Route: 048
     Dates: start: 2000

REACTIONS (4)
  - Pancreatitis [None]
  - Drug ineffective [None]
  - Muscular weakness [None]
  - Pain [None]
